FAERS Safety Report 8516074-2 (Version None)
Quarter: 2012Q3

REPORT INFORMATION
  Report Type: 
  Country: None (occurrence: None)
  Receive Date: 20120717
  Receipt Date: 20120713
  Transmission Date: 20120928
  Serious: Yes (Hospitalization, Other)
  Sender: FDA-Public Use
  Company Number: US-PFIZER INC-2012127294

PATIENT
  Sex: Female
  Weight: 67.1 kg

DRUGS (10)
  1. ROBAXIN [Concomitant]
     Dosage: 500 MG, EVERY 8 HOURS
  2. PREDNISONE [Concomitant]
     Dosage: 10 MG, DAILY
  3. AMBIEN [Concomitant]
     Dosage: 10 MG, DAILY
  4. DURAGESIC-100 [Concomitant]
     Dosage: 150 UG, EVERY 48 HOURS
  5. LYRICA [Suspect]
     Indication: FIBROMYALGIA
     Dosage: 300 MG, 2X/DAY
     Route: 048
     Dates: end: 20120101
  6. PROTONIX [Suspect]
     Indication: ABDOMINAL DISCOMFORT
  7. NORTRIPTYLINE [Concomitant]
     Indication: DEPRESSION
     Dosage: 25 MG, DAILY
  8. PROTONIX [Suspect]
     Indication: DYSPEPSIA
     Dosage: 20 MG, DAILY
     Dates: start: 20120101
  9. DEPO-PROVERA [Suspect]
     Indication: CONTRACEPTION
     Dosage: UNK, EVERY 3 MONTHS
     Dates: start: 20111101
  10. DILAUDID [Concomitant]
     Dosage: UNK

REACTIONS (1)
  - MULTIPLE SCLEROSIS [None]
